FAERS Safety Report 9454765 (Version 1)
Quarter: 2013Q3

REPORT INFORMATION
  Report Type: Spontaneous
  Country: US (occurrence: US)
  Receive Date: 20130812
  Receipt Date: 20130812
  Transmission Date: 20140515
  Serious: Yes (Death)
  Sender: FDA-Public Use
  Company Number: US-RB-057061-13

PATIENT
  Age: 23 Year
  Sex: Female

DRUGS (2)
  1. SUBOXONE TABLET [Suspect]
     Indication: DRUG DEPENDENCE
     Dosage: DOSAGE DETAILS NOT PROVIDED
     Route: 045
  2. XANAX [Suspect]
     Indication: PRODUCT USED FOR UNKNOWN INDICATION
     Dosage: DOSAGE DETAILS NOT PROVIDED
     Route: 045

REACTIONS (3)
  - Death [Fatal]
  - Intentional drug misuse [Recovered/Resolved]
  - Drug abuse [Recovered/Resolved]
